FAERS Safety Report 7578847-2 (Version None)
Quarter: 2011Q2

REPORT INFORMATION
  Report Type: 
  Country: None (occurrence: None)
  Receive Date: 20110628
  Receipt Date: 20110616
  Transmission Date: 20111010
  Serious: Yes (Hospitalization)
  Sender: FDA-Public Use
  Company Number: RU-UCBSA-8025891

PATIENT
  Sex: Female
  Weight: 66 kg

DRUGS (11)
  1. CEFAZOLIN [Concomitant]
     Indication: BRONCHITIS
     Route: 030
     Dates: start: 20070718, end: 20070727
  2. METHOTREXATE [Concomitant]
     Indication: RHEUMATOID ARTHRITIS
     Route: 048
     Dates: start: 20041001
  3. CERTOLIZUMAB PEGOL [Suspect]
     Dosage: - NR OF DOSES :27
     Route: 058
     Dates: start: 20060607, end: 20070801
  4. ACID FOLIC [Concomitant]
     Indication: DRUG TOXICITY PROPHYLAXIS
     Route: 048
     Dates: start: 20010101
  5. CELEBREX [Concomitant]
     Indication: RHEUMATOID ARTHRITIS
     Route: 048
     Dates: start: 20041201
  6. ENAP-H [Concomitant]
     Indication: HYPERTENSION
     Dosage: 1 TABLET
     Route: 048
     Dates: start: 20040201
  7. CERTOLIZUMAB PEGOL [Suspect]
     Indication: RHEUMATOID ARTHRITIS
     Dosage: - NR OF DOSES :26
     Route: 058
     Dates: start: 20050608, end: 20060524
  8. AMBROHEXAL [Concomitant]
     Indication: BRONCHITIS
     Route: 048
     Dates: start: 20070718, end: 20070720
  9. AZITHROMYCIN [Concomitant]
     Indication: INTERSTITIAL LUNG DISEASE
     Route: 048
     Dates: start: 20070720, end: 20070727
  10. AMOXICILLIN [Concomitant]
     Indication: ACUTE TONSILLITIS
     Route: 048
     Dates: start: 20070710, end: 20070718
  11. HEXORAL [Concomitant]
     Indication: ACUTE TONSILLITIS
     Route: 048
     Dates: start: 20070710, end: 20070718

REACTIONS (1)
  - DISSEMINATED TUBERCULOSIS [None]
